FAERS Safety Report 10163248 (Version 1)
Quarter: 2014Q2

REPORT INFORMATION
  Report Type: Spontaneous
  Country: FR (occurrence: FR)
  Receive Date: 20140509
  Receipt Date: 20140509
  Transmission Date: 20141212
  Serious: Yes (Hospitalization)
  Sender: FDA-Public Use
  Company Number: FR-BRISTOL-MYERS SQUIBB COMPANY-20713863

PATIENT
  Age: 63 Year
  Sex: Male
  Weight: 84 kg

DRUGS (7)
  1. GLUCOPHAGE TABS 1000 MG [Suspect]
     Indication: TYPE 2 DIABETES MELLITUS
     Route: 048
     Dates: end: 20130724
  2. ISOPTINE [Concomitant]
     Dosage: FILM-COATED TABLET
     Dates: start: 20130724
  3. COKENZEN [Concomitant]
     Indication: HYPERTENSION
     Dosage: 1 DF : 16MG/12.5MG
     Route: 048
     Dates: end: 20130724
  4. DUOPLAVIN [Concomitant]
     Route: 048
  5. HYPERIUM [Concomitant]
     Indication: HYPERTENSION
     Dosage: TABLET
     Route: 048
     Dates: end: 20130724
  6. PARIET [Concomitant]
     Dosage: GATRO-RESISTANT TABLET
     Route: 048
  7. NEURONTIN [Concomitant]
     Indication: NEUROPATHY PERIPHERAL
     Route: 048

REACTIONS (2)
  - Renal failure [Recovered/Resolved]
  - Lactic acidosis [Recovered/Resolved]
